FAERS Safety Report 9707062 (Version 1)
Quarter: 2013Q4

REPORT INFORMATION
  Report Type: Spontaneous
  Country: US (occurrence: US)
  Receive Date: 20131125
  Receipt Date: 20131125
  Transmission Date: 20140711
  Serious: No
  Sender: FDA-Public Use
  Company Number: US-PFIZER INC-2013333072

PATIENT
  Age: 79 Year
  Sex: Female
  Weight: 75.28 kg

DRUGS (2)
  1. ADVIL [Suspect]
     Indication: PAIN
     Dosage: 200 MG, ONCE
     Route: 048
     Dates: start: 201310, end: 201310
  2. ADVIL [Suspect]
     Indication: HEADACHE

REACTIONS (4)
  - Hypersensitivity [Unknown]
  - Urticaria [Unknown]
  - Gingival swelling [Unknown]
  - Erythema [Unknown]
